FAERS Safety Report 10533239 (Version 1)
Quarter: 2014Q4

REPORT INFORMATION
  Report Type: Spontaneous
  Country: TR (occurrence: None)
  Receive Date: 20141020
  Receipt Date: 20141020
  Transmission Date: 20150529
  Serious: Yes (Death, Hospitalization)
  Sender: FDA-Public Use
  Company Number: IMP_07956_2014

PATIENT
  Age: 19 Year
  Sex: Female

DRUGS (3)
  1. TETRADOX [Suspect]
     Active Substance: DOXYCYCLINE HYDROCHLORIDE
     Indication: BRUCELLOSIS
  2. DIVALPROEX SODIUM. [Suspect]
     Active Substance: DIVALPROEX SODIUM
     Indication: PRODUCT USED FOR UNKNOWN INDICATION
     Dates: start: 20090622
  3. STREPTOMYCIN [Suspect]
     Active Substance: STREPTOMYCIN\STREPTOMYCIN SULFATE
     Indication: PRODUCT USED FOR UNKNOWN INDICATION

REACTIONS (17)
  - Jaundice [None]
  - Lung consolidation [None]
  - Lymphadenopathy [None]
  - Staphylococcus test positive [None]
  - Metabolic acidosis [None]
  - Lactic acidosis [None]
  - Drug reaction with eosinophilia and systemic symptoms [None]
  - Spleen palpable [None]
  - Oedema peripheral [None]
  - Pleural effusion [None]
  - General physical health deterioration [None]
  - Pyrexia [None]
  - Liver palpable [None]
  - Respiratory alkalosis [None]
  - Cough [None]
  - Encephalopathy [None]
  - Tonsillitis [None]
